FAERS Safety Report 7961520-6 (Version None)
Quarter: 2011Q4

REPORT INFORMATION
  Report Type: 
  Country: None (occurrence: None)
  Receive Date: 20111207
  Receipt Date: 20111118
  Transmission Date: 20120403
  Serious: Yes (Death, Hospitalization)
  Sender: FDA-Public Use
  Company Number: US-ASTELLAS-2011US007869

PATIENT
  Sex: Male
  Weight: 102 kg

DRUGS (28)
  1. BEVACIZUMAB [Suspect]
     Indication: HEPATIC NEOPLASM MALIGNANT
     Dosage: 10 MG/KG, Q2W
     Route: 042
     Dates: start: 20110624, end: 20111019
  2. METOLAZONE [Concomitant]
     Indication: PRODUCT USED FOR UNKNOWN INDICATION
     Dosage: 2.5 MG, UID/QD
     Route: 048
     Dates: end: 20111111
  3. SORAFENIB [Suspect]
     Indication: HEPATIC NEOPLASM MALIGNANT
     Dosage: 400 MG, BID
     Route: 048
     Dates: start: 20111029, end: 20111110
  4. ALPRAZOLAM [Concomitant]
     Indication: ANXIETY
     Dosage: 0.25 MG, QID
     Route: 065
     Dates: start: 20110624, end: 20111111
  5. FERROUS SULFATE TAB [Concomitant]
     Indication: ANAEMIA
     Dosage: 65 MG, UID/QD
     Route: 048
     Dates: start: 20110211, end: 20111111
  6. PIOGLITAZONE [Concomitant]
     Indication: PRODUCT USED FOR UNKNOWN INDICATION
     Dosage: 30 MG, UID/QD
     Route: 048
     Dates: end: 20111111
  7. KLONOPIN [Concomitant]
     Indication: ANXIETY
     Dosage: 0.5 MG, UNKNOWN/D
     Route: 048
     Dates: start: 20110701, end: 20111111
  8. HEPARIN [Concomitant]
     Indication: DEEP VEIN THROMBOSIS
     Dosage: 0.5 ML, BID
     Route: 058
     Dates: start: 20110709, end: 20110715
  9. FAMOTIDINE [Concomitant]
     Indication: GASTROOESOPHAGEAL REFLUX DISEASE
     Dosage: 20 MG, BID
     Route: 048
     Dates: start: 20110422, end: 20111111
  10. CORTISONE ACETATE [Concomitant]
     Indication: PRODUCT USED FOR UNKNOWN INDICATION
     Dosage: 1 %, UNKNOWN/D
     Route: 061
     Dates: start: 20110707, end: 20111111
  11. BISMUTH [Concomitant]
     Dosage: UNK
     Route: 048
     Dates: start: 20111004, end: 20111013
  12. MULTI-VITAMIN [Concomitant]
     Indication: PRODUCT USED FOR UNKNOWN INDICATION
     Dosage: UNK
     Route: 065
     Dates: end: 20111111
  13. NYSTATIN [Concomitant]
     Indication: PRODUCT USED FOR UNKNOWN INDICATION
     Dosage: 100000 UG, UNKNOWN/D
     Route: 061
     Dates: end: 20111111
  14. SIMVASTATIN [Concomitant]
     Indication: PRODUCT USED FOR UNKNOWN INDICATION
     Dosage: 80 MG, UID/QD
     Route: 048
     Dates: end: 20111111
  15. ENOXAPARIN [Concomitant]
     Indication: DEEP VEIN THROMBOSIS
     Dosage: 60 MG, UID/QD
     Route: 058
     Dates: start: 20110716, end: 20111111
  16. BISMUTH [Concomitant]
     Indication: DIARRHOEA
     Dosage: UNK
     Route: 048
     Dates: start: 20110918, end: 20110921
  17. FUROSEMIDE [Concomitant]
     Indication: HYPERTENSION
     Dosage: 40 MG, UID/QD
     Route: 048
     Dates: start: 20110407, end: 20111111
  18. HYDROXYZINE HYDROCHLORIDE [Concomitant]
     Indication: PRODUCT USED FOR UNKNOWN INDICATION
     Dosage: 25 MG, UNKNOWN/D
     Route: 048
     Dates: start: 20110331, end: 20111111
  19. TEMAZEPAM [Concomitant]
     Indication: PRODUCT USED FOR UNKNOWN INDICATION
     Dosage: 15 MG, UID/QD
     Route: 048
     Dates: end: 20111111
  20. LOTRISONE [Concomitant]
     Indication: FUNGAL INFECTION
     Dosage: 30 MG, BID
     Route: 061
     Dates: start: 20110708, end: 20111111
  21. ERLOTINIB HYDROCHLORIDE [Suspect]
     Indication: HEPATIC NEOPLASM MALIGNANT
     Dosage: 150 MG, UID/QD
     Route: 048
     Dates: start: 20110624, end: 20111019
  22. ASPIRIN [Concomitant]
     Indication: HYPERLIPIDAEMIA
     Dosage: 8 MG, BID
     Route: 048
     Dates: start: 20111111
  23. ISOSORBIDE MONONITRATE [Concomitant]
     Indication: CORONARY ARTERY DISEASE
     Dosage: 30 MG, UID/QD
     Route: 048
     Dates: end: 20111111
  24. METOPROLOL TARTRATE [Concomitant]
     Indication: PRODUCT USED FOR UNKNOWN INDICATION
     Dosage: 25 MG, UID/QD
     Route: 048
     Dates: end: 20111111
  25. DOXYCYCLINE [Concomitant]
     Indication: DERMATITIS ACNEIFORM
     Dosage: 100 MG, BID
     Route: 048
     Dates: start: 20110707, end: 20111111
  26. LOVENOX [Concomitant]
     Indication: PRODUCT USED FOR UNKNOWN INDICATION
     Dosage: UNK
     Route: 065
     Dates: start: 20110716, end: 20111111
  27. SODIUM CHLORIDE [Concomitant]
     Indication: DRY EYE
     Dosage: UNK
     Route: 065
  28. SPIRONOLACTONE [Concomitant]
     Indication: PRODUCT USED FOR UNKNOWN INDICATION
     Dosage: 25 MG, UID/QD
     Route: 048

REACTIONS (2)
  - OFF LABEL USE [None]
  - CARDIAC ARREST [None]
